FAERS Safety Report 8179510-X (Version None)
Quarter: 2012Q1

REPORT INFORMATION
  Report Type: 
  Country: None (occurrence: None)
  Receive Date: 20120229
  Receipt Date: 20120222
  Transmission Date: 20120608
  Serious: Yes (Other)
  Sender: FDA-Public Use
  Company Number: 130331

PATIENT
  Age: 65 Year
  Sex: Male

DRUGS (1)
  1. KETOROLAC TROMETHAMINE [Suspect]
     Dosage: 30 MG INTRAMUSCULARLY, SINGLE DOSE
     Route: 030
     Dates: start: 20120222

REACTIONS (2)
  - MEDICATION ERROR [None]
  - EXPIRED DRUG ADMINISTERED [None]
